FAERS Safety Report 24337662 (Version 2)
Quarter: 2024Q3

REPORT INFORMATION
  Report Type: Spontaneous
  Country: JP (occurrence: JP)
  Receive Date: 20240919
  Receipt Date: 20240923
  Transmission Date: 20241017
  Serious: No
  Sender: ROCHE
  Company Number: JP-CHUGAI-2023038620

PATIENT
  Age: 8 Year
  Sex: Female

DRUGS (1)
  1. TAMIFLU [Suspect]
     Active Substance: OSELTAMIVIR PHOSPHATE
     Indication: Influenza
     Dosage: DRY SYRUP
     Route: 048
     Dates: start: 202310

REACTIONS (2)
  - Vaginal discharge [Unknown]
  - Pyrexia [Unknown]

NARRATIVE: CASE EVENT DATE: 20231026
